FAERS Safety Report 17170818 (Version 1)
Quarter: 2019Q4

REPORT INFORMATION
  Report Type: Spontaneous
  Country: US (occurrence: US)
  Receive Date: 20191218
  Receipt Date: 20191218
  Transmission Date: 20200122
  Serious: No
  Sender: FDA-Public Use
  Company Number: US-BIOGEN-2019BI00815701

PATIENT
  Age: 56 Year
  Sex: Male

DRUGS (1)
  1. VUMERITY [Suspect]
     Active Substance: DIROXIMEL FUMARATE
     Indication: MULTIPLE SCLEROSIS
     Dosage: 4 PILLS A DAY; 2 IN THE MORNING AND 2 AT NIGHT
     Route: 065

REACTIONS (4)
  - Milk allergy [Not Recovered/Not Resolved]
  - Loss of consciousness [Recovered/Resolved]
  - Influenza [Not Recovered/Not Resolved]
  - Feeling abnormal [Unknown]

NARRATIVE: CASE EVENT DATE: 20191205
